FAERS Safety Report 9829967 (Version 2)
Quarter: 2014Q1

REPORT INFORMATION
  Report Type: Spontaneous
  Country: US (occurrence: US)
  Receive Date: 20140120
  Receipt Date: 20140304
  Transmission Date: 20141002
  Serious: No
  Sender: FDA-Public Use
  Company Number: US-009507513-1401USA008268

PATIENT
  Age: 51 Year
  Sex: Female
  Weight: 63.95 kg

DRUGS (4)
  1. OXYTROL FOR WOMEN [Suspect]
     Indication: HYPERTONIC BLADDER
     Dosage: 1 DF, Q4D
     Route: 062
     Dates: start: 20131101, end: 20140104
  2. VITAMINS (UNSPECIFIED) [Concomitant]
     Indication: PRODUCT USED FOR UNKNOWN INDICATION
     Dosage: UNK, UNKNOWN
  3. DICYCLOMINE HYDROCHLORIDE [Concomitant]
     Indication: PRODUCT USED FOR UNKNOWN INDICATION
     Dosage: 10 MG, UNKNOWN
  4. ONE-A-DAY WOMEN^S [Concomitant]
     Indication: PRODUCT USED FOR UNKNOWN INDICATION
     Dosage: UNK, UNKNOWN

REACTIONS (10)
  - Application site vesicles [Unknown]
  - Application site pain [Unknown]
  - Application site discharge [Unknown]
  - Scar [Not Recovered/Not Resolved]
  - Application site discolouration [Unknown]
  - Dry skin [Unknown]
  - Application site pruritus [Recovered/Resolved]
  - Pruritus [Recovered/Resolved]
  - Rash [Not Recovered/Not Resolved]
  - Inappropriate schedule of drug administration [Unknown]
